FAERS Safety Report 6019910-7 (Version None)
Quarter: 2008Q4

REPORT INFORMATION
  Report Type: 
  Country: None (occurrence: None)
  Receive Date: 20081223
  Receipt Date: 20081208
  Transmission Date: 20090506
  Serious: Yes (Hospitalization)
  Sender: FDA-Public Use
  Company Number: KV200800996

PATIENT
  Age: 83 Year
  Sex: Male
  Weight: 97.5 kg

DRUGS (2)
  1. ISOSORBIDE MONONITRATE [Suspect]
     Indication: CARDIAC FAILURE CONGESTIVE
     Dosage: 30 MG QD ORAL
     Route: 048
     Dates: start: 20070101
  2. TOPROL-XL [Concomitant]

REACTIONS (6)
  - COUGH [None]
  - DEHYDRATION [None]
  - PNEUMONIA [None]
  - PRODUCT QUALITY ISSUE [None]
  - RASH [None]
  - TRACHEAL STENOSIS [None]
